FAERS Safety Report 10960217 (Version 1)
Quarter: 2015Q1

REPORT INFORMATION
  Report Type: Spontaneous
  Country: IT (occurrence: None)
  Receive Date: 20150325
  Receipt Date: 20150325
  Transmission Date: 20150721
  Serious: Yes (Death, Other)
  Sender: FDA-Public Use
  Company Number: FK201501298

PATIENT
  Age: 61 Year
  Sex: Male

DRUGS (2)
  1. HEPARIN [Suspect]
     Active Substance: HEPARIN SODIUM
     Indication: PRODUCT USED FOR UNKNOWN INDICATION
     Route: 058
  2. CINACALCET [Concomitant]
     Active Substance: CINACALCET

REACTIONS (6)
  - Blood phosphorus increased [None]
  - Blood calcium decreased [None]
  - Injection site necrosis [None]
  - Injection site ulcer [None]
  - Blood alkaline phosphatase increased [None]
  - Cardiovascular disorder [None]
